FAERS Safety Report 4775659-X (Version None)
Quarter: 2005Q3

REPORT INFORMATION
  Report Type: 
  Country: None (occurrence: None)
  Receive Date: 20050921
  Receipt Date: 20050921
  Transmission Date: 20060218
  Serious: Yes (Other)
  Sender: FDA-Public Use
  Company Number: None

PATIENT

DRUGS (1)
  1. TRISEPTIN WATERLESS SCRUB CAS-SURGICAL SCRUB [Suspect]

REACTIONS (1)
  - DRUG DISPENSING ERROR [None]
